FAERS Safety Report 4814252-7 (Version None)
Quarter: 2005Q4

REPORT INFORMATION
  Report Type: 
  Country: None (occurrence: None)
  Receive Date: 20051028
  Receipt Date: 20050726
  Transmission Date: 20060501
  Serious: Yes (Other)
  Sender: FDA-Public Use
  Company Number: US-GLAXOSMITHKLINE-A0567736A

PATIENT
  Age: 57 Year
  Sex: Female
  Weight: 78.3 kg

DRUGS (7)
  1. ADVAIR DISKUS 100/50 [Suspect]
     Indication: ASTHMA
     Dosage: 1PUFF TWICE PER DAY
     Route: 055
     Dates: start: 20040315, end: 20050512
  2. BENICAR [Concomitant]
     Indication: HYPERTENSION
     Route: 048
  3. SYNTHROID [Concomitant]
     Indication: HYPOTHYROIDISM
     Dosage: .15MG PER DAY
  4. CLARINEX [Concomitant]
     Dosage: 5MG AS REQUIRED
  5. MIACALCIN [Concomitant]
     Indication: OSTEOPOROSIS
     Dosage: 1SPR PER DAY
  6. ALBUTEROL [Concomitant]
     Indication: ASTHMA
     Dosage: 2PUFF AS REQUIRED
  7. PREVACID [Concomitant]
     Dosage: 30MG PER DAY

REACTIONS (2)
  - CANDIDIASIS [None]
  - INTRAOCULAR PRESSURE INCREASED [None]
